FAERS Safety Report 5655480-0 (Version None)
Quarter: 2008Q1

REPORT INFORMATION
  Report Type: 
  Country: None (occurrence: None)
  Receive Date: 20080307
  Receipt Date: 20080227
  Transmission Date: 20080703
  Serious: Yes (Hospitalization, Other)
  Sender: FDA-Public Use
  Company Number: US-ELI_LILLY_AND_COMPANY-US200802006276

PATIENT
  Sex: Male

DRUGS (4)
  1. HUMALOG [Suspect]
  2. LANTUS [Concomitant]
     Dosage: UNK, AT BEDTIME
  3. PREDNISONE TAB [Concomitant]
  4. COUMADIN [Concomitant]

REACTIONS (2)
  - BLOOD PRESSURE DECREASED [None]
  - HAEMORRHAGE [None]
